FAERS Safety Report 8859106 (Version 1)
Quarter: 2012Q4

REPORT INFORMATION
  Report Type: 
  Country: JP (occurrence: JP)
  Receive Date: 20121024
  Receipt Date: 20121024
  Transmission Date: 20130627
  Serious: Yes (Other)
  Sender: FDA-Public Use
  Company Number: JP-PFIZER INC-2012259733

PATIENT
  Age: 80 Year
  Sex: Male

DRUGS (1)
  1. REVATIO [Suspect]
     Indication: PULMONARY HYPERTENSION
     Dosage: 40 mg daily
     Route: 048
     Dates: start: 201207

REACTIONS (3)
  - Visual impairment [Unknown]
  - Intraocular pressure test abnormal [Unknown]
  - Colour blindness [Unknown]
